FAERS Safety Report 25126989 (Version 1)
Quarter: 2025Q1

REPORT INFORMATION
  Report Type: Spontaneous
  Country: US (occurrence: US)
  Receive Date: 20250327
  Receipt Date: 20250327
  Transmission Date: 20250409
  Serious: No
  Sender: UCB
  Company Number: US-UCBSA-2025006620

PATIENT
  Age: 61 Year
  Sex: Male
  Weight: 90.71 kg

DRUGS (1)
  1. BIMZELX [Suspect]
     Active Substance: BIMEKIZUMAB-BKZX
     Indication: Psoriasis
     Dosage: 320 MILLIGRAM, EV 8 WEEKS
     Route: 058

REACTIONS (6)
  - Sinus disorder [Unknown]
  - Lacrimation increased [Unknown]
  - Sneezing [Unknown]
  - Rhinorrhoea [Unknown]
  - Abdominal distension [Unknown]
  - Gastrointestinal motility disorder [Unknown]

NARRATIVE: CASE EVENT DATE: 20250101
